FAERS Safety Report 9374835 (Version 2)
Quarter: 2013Q4

REPORT INFORMATION
  Report Type: Spontaneous
  Country: US (occurrence: US)
  Receive Date: 20130628
  Receipt Date: 20131105
  Transmission Date: 20140711
  Serious: Yes (Life-Threatening, Hospitalization, Other)
  Sender: FDA-Public Use
  Company Number: US-BAYER-2013-076449

PATIENT
  Age: 27 Year
  Sex: Female
  Weight: 58.96 kg

DRUGS (7)
  1. MIRENA [Suspect]
     Indication: CONTRACEPTION
     Dosage: 20 MCG/24HR, CONT
     Route: 015
     Dates: start: 20110826, end: 20120730
  2. GENTAMYCIN [Concomitant]
     Dosage: 3 MG/ML, UNK
     Route: 047
  3. METRONIDAZOLE [Concomitant]
     Dosage: 500 MG, BID
  4. PRENATAL VITAMINS [Concomitant]
     Dosage: ONE TABLET DAILY
     Dates: start: 20120727
  5. OXYCODONE/APAP [Concomitant]
     Dosage: 5-325 MG, ONE TABLET EVERY SIX HOURS AS NEEDED
  6. FLAGYL [Concomitant]
  7. PROPRANOLOL [Concomitant]
     Indication: MIGRAINE

REACTIONS (13)
  - Uterine perforation [None]
  - Abdominal pain lower [None]
  - Abortion spontaneous [None]
  - Pregnancy with contraceptive device [None]
  - Injury [None]
  - General physical health deterioration [None]
  - Anxiety [None]
  - Anhedonia [None]
  - Emotional distress [None]
  - Stress [None]
  - Pain [None]
  - Infection [None]
  - Drug ineffective [None]
